FAERS Safety Report 8978350 (Version 2)
Quarter: 2013Q1

REPORT INFORMATION
  Report Type: Spontaneous
  Country: CN (occurrence: CN)
  Receive Date: 20121220
  Receipt Date: 20130219
  Transmission Date: 20140127
  Serious: Yes (Hospitalization)
  Sender: FDA-Public Use
  Company Number: CN-009507513-1212CHN007416

PATIENT
  Age: 9 Year
  Sex: Male
  Weight: 40 kg

DRUGS (1)
  1. LORATADINE [Suspect]
     Indication: HYPERSENSITIVITY
     Dosage: STRENGTH : 1.0 UNKNOWN UNITS
     Dates: start: 20110417, end: 20110419

REACTIONS (1)
  - Dystonia [Recovering/Resolving]
